FAERS Safety Report 19589146 (Version 1)
Quarter: 2021Q3

REPORT INFORMATION
  Report Type: Spontaneous
  Country: CN (occurrence: CN)
  Receive Date: 20210721
  Receipt Date: 20210721
  Transmission Date: 20211014
  Serious: Yes (Hospitalization)
  Sender: FDA-Public Use
  Company Number: CN-PFIZER INC-2021847171

PATIENT
  Age: 78 Year
  Sex: Male
  Weight: 62.5 kg

DRUGS (2)
  1. SOLU?MEDROL [Suspect]
     Active Substance: METHYLPREDNISOLONE SODIUM SUCCINATE
     Indication: EPIGLOTTITIS
     Dosage: 80.MG, 1X/DAY
     Route: 041
     Dates: start: 20210629, end: 20210630
  2. SOLU?MEDROL [Suspect]
     Active Substance: METHYLPREDNISOLONE SODIUM SUCCINATE
     Dosage: 40 MG, 1X/DAY
     Route: 041
     Dates: start: 20210701, end: 20210701

REACTIONS (7)
  - Off label use [Unknown]
  - Hiccups [Recovering/Resolving]
  - Nausea [Unknown]
  - Discomfort [Unknown]
  - Eructation [Recovering/Resolving]
  - Abdominal pain upper [Unknown]
  - Vomiting [Unknown]

NARRATIVE: CASE EVENT DATE: 20210701
